FAERS Safety Report 4682111-9 (Version None)
Quarter: 2005Q2

REPORT INFORMATION
  Report Type: 
  Country: None (occurrence: None)
  Receive Date: 20050531
  Receipt Date: 20050218
  Transmission Date: 20051028
  Serious: No
  Sender: FDA-Public Use
  Company Number: FABR-10895

PATIENT
  Age: 43 Year
  Sex: Male
  Weight: 99.1 kg

DRUGS (3)
  1. FABRAZYME [Suspect]
     Indication: FABRY'S DISEASE
     Dosage: 105 MG Q2WKS IV
     Route: 042
     Dates: start: 20030617
  2. TYLENOL [Concomitant]
  3. QUININE SULFATE [Concomitant]

REACTIONS (1)
  - CELLULITIS [None]
